FAERS Safety Report 5194475-0 (Version None)
Quarter: 2006Q4

REPORT INFORMATION
  Report Type: 
  Country: None (occurrence: None)
  Receive Date: 20061220
  Receipt Date: 20061205
  Transmission Date: 20070319
  Serious: Yes (Hospitalization)
  Sender: FDA-Public Use
  Company Number: 2006-151353-NL

PATIENT
  Age: 35 Year
  Sex: Female

DRUGS (4)
  1. IMPLANON [Suspect]
     Indication: CONTRACEPTION
     Dosage: 1 DF ONCE
     Route: 058
     Dates: start: 20050921, end: 20061213
  2. SODIUM PICOSULFATE [Concomitant]
  3. MIRTAZAPINE [Concomitant]
  4. LORAZEPAM [Concomitant]

REACTIONS (7)
  - ARTERIAL THROMBOSIS LIMB [None]
  - HYPERTRIGLYCERIDAEMIA [None]
  - ILIAC ARTERY THROMBOSIS [None]
  - PERIPHERAL ARTERIAL OCCLUSIVE DISEASE [None]
  - PERIPHERAL EMBOLISM [None]
  - PERIPHERAL ISCHAEMIA [None]
  - REOCCLUSION [None]
